FAERS Safety Report 9207187 (Version 1)
Quarter: 2013Q1

REPORT INFORMATION
  Report Type: Spontaneous
  Country: US (occurrence: None)
  Receive Date: 20120731
  Receipt Date: 20120731
  Transmission Date: 20140127
  Serious: No
  Sender: FDA-Public Use
  Company Number: PHEH2012US010024

PATIENT
  Age: 86 Year
  Sex: Male

DRUGS (12)
  1. ARCAPTA [Suspect]
     Indication: CHRONIC OBSTRUCTIVE PULMONARY DISEASE
     Dates: start: 20120407
  2. ALBUTEROL (SALBUTAMOL) [Concomitant]
  3. TYLENOL )PARACETAMOL) [Concomitant]
  4. ASPIRIN ^BAYER^ (ACETYLSALICYLIC ACID) [Concomitant]
  5. CLOPIDOGREL (CLOPIDOGREL) [Concomitant]
  6. DOXYCYCLINE (DOXYCYCLINE) [Concomitant]
  7. FUROSEMIDE (FUROSEMIDE) [Concomitant]
  8. POTASSIUM CHLORIDE (POTASSIUM CHLORIDE) [Concomitant]
  9. AMPIRCIPAL [Concomitant]
  10. SANDOSTATIN (OCTREOTIDE) [Concomitant]
  11. ZOCOR ^DIECKMANN^ (SIMVASTATIN) [Concomitant]
  12. TIOTROPIUM (TIOTROPIUM) [Concomitant]

REACTIONS (1)
  - Rhinorrhoea [None]
